FAERS Safety Report 10291146 (Version 1)
Quarter: 2014Q3

REPORT INFORMATION
  Report Type: Spontaneous
  Country: SG (occurrence: None)
  Receive Date: 20140708
  Receipt Date: 20140708
  Transmission Date: 20150326
  Serious: Yes (Other)
  Sender: FDA-Public Use
  Company Number: 2014JUB00038

PATIENT
  Age: 73 Year
  Sex: Female

DRUGS (1)
  1. ALENDRONATE [Suspect]
     Active Substance: ALENDRONATE SODIUM
     Dates: start: 2000, end: 200706

REACTIONS (4)
  - Atypical femur fracture [None]
  - Device failure [None]
  - Impaired healing [None]
  - Fracture nonunion [None]

NARRATIVE: CASE EVENT DATE: 200706
